FAERS Safety Report 6861094-7 (Version None)
Quarter: 2010Q3

REPORT INFORMATION
  Report Type: 
  Country: None (occurrence: None)
  Receive Date: 20100720
  Receipt Date: 20100712
  Transmission Date: 20110219
  Serious: Yes (Other)
  Sender: FDA-Public Use
  Company Number: DE-ASTRAZENECA-2010SE32949

PATIENT
  Age: 27 Year
  Sex: Male

DRUGS (15)
  1. SEROQUEL XR [Suspect]
     Indication: DEPRESSION
     Dosage: 25 MG ON FIRST TWO DAYS
     Route: 048
  2. SEROQUEL XR [Suspect]
     Indication: ANXIETY
     Dosage: 25 MG ON FIRST TWO DAYS
     Route: 048
  3. SEROQUEL XR [Suspect]
     Indication: OBSESSIVE-COMPULSIVE DISORDER
     Dosage: 25 MG ON FIRST TWO DAYS
     Route: 048
  4. SEROQUEL XR [Suspect]
     Dosage: 50 MG ON THE THIRD DAY
     Route: 048
  5. SEROQUEL XR [Suspect]
     Dosage: 50 MG ON THE THIRD DAY
     Route: 048
  6. SEROQUEL XR [Suspect]
     Dosage: 50 MG ON THE THIRD DAY
     Route: 048
  7. SEROQUEL XR [Suspect]
     Dosage: 100 MG ON THE FORTH DAY
     Route: 048
  8. SEROQUEL XR [Suspect]
     Dosage: 100 MG ON THE FORTH DAY
     Route: 048
  9. SEROQUEL XR [Suspect]
     Dosage: 100 MG ON THE FORTH DAY
     Route: 048
  10. SEROQUEL XR [Suspect]
     Dosage: 150 MG FROM THE FIFTH DAY
     Route: 048
  11. SEROQUEL XR [Suspect]
     Dosage: 150 MG FROM THE FIFTH DAY
     Route: 048
  12. SEROQUEL XR [Suspect]
     Dosage: 150 MG FROM THE FIFTH DAY
     Route: 048
  13. CIPRALEX [Concomitant]
     Dates: start: 20100501
  14. MIRTAZAPINE [Concomitant]
  15. LORAZEPAM [Concomitant]

REACTIONS (2)
  - AGGRESSION [None]
  - SUICIDAL IDEATION [None]
